FAERS Safety Report 4345931-6 (Version None)
Quarter: 2004Q2

REPORT INFORMATION
  Report Type: 
  Country: None (occurrence: None)
  Receive Date: 20040420
  Receipt Date: 20040407
  Transmission Date: 20050107
  Serious: Yes (Other)
  Sender: FDA-Public Use
  Company Number: UK069348

PATIENT
  Age: 37 Year
  Sex: Male

DRUGS (10)
  1. ARANESP [Suspect]
     Indication: RENAL FAILURE CHRONIC
     Dosage: 80 MCG, 1 IN 1 WEEKS, IV
     Route: 042
  2. ATENOLOL [Concomitant]
  3. OMEPRAZOLE [Concomitant]
  4. SODIUM BICARBONATE [Concomitant]
  5. PRAZOSIN HYDROCHLORIDE [Concomitant]
  6. CALCIUM CARBONATE [Concomitant]
  7. NIFEDIPINE [Concomitant]
  8. PRAVASTATIN [Concomitant]
  9. BENAZEPRIL HCL [Concomitant]
  10. VENOFER [Concomitant]

REACTIONS (1)
  - COAGULOPATHY [None]
